FAERS Safety Report 15017781 (Version 4)
Quarter: 2018Q3

REPORT INFORMATION
  Report Type: Report from Study
  Country: US (occurrence: US)
  Receive Date: 20180615
  Receipt Date: 20180703
  Transmission Date: 20181010
  Serious: Yes (Death)
  Sender: FDA-Public Use
  Company Number: US-PFIZER INC-2018241631

PATIENT
  Age: 69 Year
  Sex: Male
  Weight: 64 kg

DRUGS (2)
  1. CETUXIMAB. [Suspect]
     Active Substance: CETUXIMAB
     Indication: LARYNGEAL CANCER
     Dosage: 250 MG/M2, WEEKLY FOR 3 WEEKS
     Route: 042
     Dates: start: 20180524, end: 20180606
  2. PALBOCICLIB [Suspect]
     Active Substance: PALBOCICLIB
     Indication: LARYNGEAL CANCER
     Dosage: 5 ML?125 MG, DAILY FOR 21 DAYS
     Dates: start: 20180524, end: 20180606

REACTIONS (1)
  - Aspiration [Fatal]

NARRATIVE: CASE EVENT DATE: 20180608
